FAERS Safety Report 24745244 (Version 1)
Quarter: 2024Q4

REPORT INFORMATION
  Report Type: Report from Study
  Country: BR (occurrence: BR)
  Receive Date: 20241217
  Receipt Date: 20241217
  Transmission Date: 20250114
  Serious: Yes (Hospitalization)
  Sender: BIOGEN
  Company Number: BR-BIOGEN-2024BI01293821

PATIENT
  Sex: Female
  Weight: 57 kg

DRUGS (1)
  1. TYSABRI [Suspect]
     Active Substance: NATALIZUMAB
     Indication: Multiple sclerosis
     Route: 050
     Dates: start: 202403

REACTIONS (6)
  - Gait disturbance [Not Recovered/Not Resolved]
  - Hypophagia [Unknown]
  - Asthenia [Unknown]
  - Underweight [Unknown]
  - Fall [Recovered/Resolved]
  - Multiple sclerosis [Unknown]
